FAERS Safety Report 6741063-8 (Version None)
Quarter: 2010Q2

REPORT INFORMATION
  Report Type: 
  Country: None (occurrence: None)
  Receive Date: 20100525
  Receipt Date: 20100525
  Transmission Date: 20101027
  Serious: Yes (Other)
  Sender: FDA-Public Use
  Company Number: None

PATIENT
  Age: 29 Year
  Sex: Male
  Weight: 77.1115 kg

DRUGS (1)
  1. TRIMETHOPRIM + SULFAMETHOXAZOLE [Suspect]
     Indication: CELLULITIS
     Dosage: 1 TABLET TWICE DAILY
     Route: 048

REACTIONS (1)
  - STEVENS-JOHNSON SYNDROME [None]
